FAERS Safety Report 7098186-6 (Version None)
Quarter: 2010Q4

REPORT INFORMATION
  Report Type: 
  Country: None (occurrence: None)
  Receive Date: 20101105
  Receipt Date: 20101029
  Transmission Date: 20110411
  Serious: Yes (Disabling)
  Sender: FDA-Public Use
  Company Number: 2010MA004137

PATIENT
  Age: 77 Year
  Sex: Female

DRUGS (8)
  1. GABAPENTIN [Suspect]
     Dosage: PO
     Route: 048
  2. NEURONTIN [Suspect]
     Indication: INTERVERTEBRAL DISC DISORDER
     Dosage: 300 MG;QID;PO
     Route: 048
     Dates: start: 20090224
  3. AMIAS [Concomitant]
  4. LANSOPRAZOLE [Concomitant]
  5. TAMBOCOR [Concomitant]
  6. PLAVIX [Concomitant]
  7. NU-SEALS ASPIRIN [Concomitant]
  8. LIPITOR [Concomitant]

REACTIONS (4)
  - ASTHENIA [None]
  - DRUG INTOLERANCE [None]
  - HYPERHIDROSIS [None]
  - PRODUCT QUALITY ISSUE [None]
